FAERS Safety Report 10866661 (Version 1)
Quarter: 2015Q1

REPORT INFORMATION
  Report Type: Spontaneous
  Country: US (occurrence: None)
  Receive Date: 20150220
  Receipt Date: 20150220
  Transmission Date: 20150721
  Serious: No
  Sender: FDA-Public Use
  Company Number: None

PATIENT
  Age: 46 Year
  Sex: Male
  Weight: 79.38 kg

DRUGS (3)
  1. RESTASIS [Suspect]
     Active Substance: CYCLOSPORINE
     Indication: LACRIMAL DISORDER
     Dosage: 1 DROP, TWICE DAILY, INTO THE EYE
     Dates: start: 20141217, end: 20150109
  2. RESTASIS [Suspect]
     Active Substance: CYCLOSPORINE
     Indication: OCULAR HYPERAEMIA
     Dosage: 1 DROP, TWICE DAILY, INTO THE EYE
     Dates: start: 20141217, end: 20150109
  3. RESTASIS [Suspect]
     Active Substance: CYCLOSPORINE
     Indication: DRY EYE
     Dosage: 1 DROP, TWICE DAILY, INTO THE EYE
     Dates: start: 20141217, end: 20150109

REACTIONS (3)
  - Ocular hyperaemia [None]
  - Eye discharge [None]
  - Ocular discomfort [None]

NARRATIVE: CASE EVENT DATE: 20150109
